FAERS Safety Report 5642485-9 (Version None)
Quarter: 2008Q1

REPORT INFORMATION
  Report Type: 
  Country: None (occurrence: None)
  Receive Date: 20080228
  Receipt Date: 20080219
  Transmission Date: 20080703
  Serious: Yes (Other)
  Sender: FDA-Public Use
  Company Number: US-JNJFOC-20080204686

PATIENT

DRUGS (1)
  1. TOPIRAMATE [Suspect]
     Indication: EPILEPSY

REACTIONS (3)
  - ENCEPHALOPATHY [None]
  - METABOLIC ACIDOSIS [None]
  - OSTEOPENIA [None]
